FAERS Safety Report 23192464 (Version 4)
Quarter: 2024Q3

REPORT INFORMATION
  Report Type: Spontaneous
  Country: US (occurrence: US)
  Receive Date: 20231116
  Receipt Date: 20240919
  Transmission Date: 20241017
  Serious: Yes (Life-Threatening, Hospitalization, Other)
  Sender: INCYTE
  Company Number: US-INCYTE CORPORATION-2023IN011941

PATIENT

DRUGS (4)
  1. JAKAFI [Suspect]
     Active Substance: RUXOLITINIB
     Indication: Myelofibrosis
     Dosage: 20 MILLIGRAM, BID
     Route: 048
     Dates: start: 20170908
  2. JAKAFI [Suspect]
     Active Substance: RUXOLITINIB
     Dosage: 20 MILLIGRAM, QD
     Route: 048
     Dates: start: 20190320
  3. METFORMIN [Suspect]
     Active Substance: METFORMIN HYDROCHLORIDE
     Indication: Product used for unknown indication
     Route: 065
  4. ELIQUIS [Concomitant]
     Active Substance: APIXABAN
     Indication: Product used for unknown indication
     Route: 065

REACTIONS (23)
  - Renal failure [Unknown]
  - Transient ischaemic attack [Unknown]
  - Staring [Unknown]
  - Insomnia [Unknown]
  - Heart rate decreased [Unknown]
  - Cold sweat [Unknown]
  - Discomfort [Unknown]
  - Stomatitis [Unknown]
  - Hypersomnia [Unknown]
  - Dyskinesia [Unknown]
  - Memory impairment [Unknown]
  - Disturbance in attention [Unknown]
  - White blood cell count decreased [Unknown]
  - Rash pruritic [Unknown]
  - Cardiovascular disorder [Unknown]
  - Fatigue [Unknown]
  - Dyspnoea exertional [Unknown]
  - Headache [Unknown]
  - Contusion [Unknown]
  - Dizziness [Unknown]
  - Nausea [Unknown]
  - Anaemia [Recovered/Resolved]
  - Vertigo [Unknown]

NARRATIVE: CASE EVENT DATE: 20230701
